FAERS Safety Report 4918647-2 (Version None)
Quarter: 2006Q1

REPORT INFORMATION
  Report Type: 
  Country: None (occurrence: None)
  Receive Date: 20060221
  Receipt Date: 20060221
  Transmission Date: 20060701
  Serious: Yes (Life-Threatening, Hospitalization)
  Sender: FDA-Public Use
  Company Number: None

PATIENT
  Age: 73 Year
  Sex: Female

DRUGS (19)
  1. QUININE SULFATE [Suspect]
     Indication: MUSCLE SPASMS
     Dosage: 324MG DAILY AT HS PO
     Route: 048
     Dates: start: 20051128, end: 20051210
  2. LEVOTHYROXINE SODIUM [Concomitant]
  3. TOPROL-XL [Concomitant]
  4. DIGOXIN [Concomitant]
  5. GABAPENTIN [Concomitant]
  6. FUROSEMIDE [Concomitant]
  7. LOVENOX [Concomitant]
  8. ALLOPURINOL [Concomitant]
  9. ALPHAGAN [Concomitant]
  10. PREDNISOLONE [Concomitant]
  11. FLOVENT [Concomitant]
  12. LIPITOR [Concomitant]
  13. DILTIAZEM HCL [Concomitant]
  14. TRAZODONE [Concomitant]
  15. CLONAZEPAM [Concomitant]
  16. REQUIP [Concomitant]
  17. METOLAZONE [Concomitant]
  18. HECTORAL [Concomitant]
  19. POTASSIUM [Concomitant]

REACTIONS (3)
  - DIARRHOEA HAEMORRHAGIC [None]
  - ORAL SOFT TISSUE DISORDER [None]
  - THROMBOCYTOPENIA [None]
